FAERS Safety Report 19991216 (Version 1)
Quarter: 2021Q4

REPORT INFORMATION
  Report Type: Spontaneous
  Country: US (occurrence: US)
  Receive Date: 20211025
  Receipt Date: 20211025
  Transmission Date: 20220303
  Serious: Yes (Other)
  Sender: FDA-Public Use
  Company Number: US-NOVARTISPH-NVSC2021US239647

PATIENT
  Age: 31 Year
  Sex: Male

DRUGS (18)
  1. CARBOPLATIN [Suspect]
     Active Substance: CARBOPLATIN
     Indication: Non-renal cell carcinoma of kidney
     Dosage: 400 MG/M2, CYCLIC (ON DAY 1) (4 CYCLES)
     Route: 065
  2. CARBOPLATIN [Suspect]
     Active Substance: CARBOPLATIN
     Indication: Metastases to lung
  3. CARBOPLATIN [Suspect]
     Active Substance: CARBOPLATIN
     Indication: Metastases to liver
  4. PACLITAXEL [Suspect]
     Active Substance: PACLITAXEL
     Indication: Non-renal cell carcinoma of kidney
     Dosage: 80 MG/M2, CYCLIC (ON DAY 1,8,15) (4 CYCLES)
     Route: 065
  5. PACLITAXEL [Suspect]
     Active Substance: PACLITAXEL
     Indication: Metastases to liver
  6. PACLITAXEL [Suspect]
     Active Substance: PACLITAXEL
     Indication: Metastases to lung
  7. GEMCITABINE [Suspect]
     Active Substance: GEMCITABINE
     Indication: Non-renal cell carcinoma of kidney
     Dosage: 1000 MG/M2, CYCLIC (ON DAY 1,8,15) (4 CYCLES)
     Route: 065
  8. GEMCITABINE [Suspect]
     Active Substance: GEMCITABINE
     Indication: Metastases to lung
  9. GEMCITABINE [Suspect]
     Active Substance: GEMCITABINE
     Indication: Metastases to liver
  10. CISPLATIN [Suspect]
     Active Substance: CISPLATIN
     Indication: Non-renal cell carcinoma of kidney
     Dosage: 70 MG/M2, CYCLIC (ON DAY 1) (4 CYCLES)
     Route: 065
  11. CISPLATIN [Suspect]
     Active Substance: CISPLATIN
     Indication: Metastases to lung
  12. CISPLATIN [Suspect]
     Active Substance: CISPLATIN
     Indication: Metastases to liver
  13. DOXORUBICIN [Suspect]
     Active Substance: DOXORUBICIN
     Indication: Non-renal cell carcinoma of kidney
     Dosage: 30 MG/M2, CYCLIC (ON DAY 1) (4 CYCLES)
     Route: 065
  14. DOXORUBICIN [Suspect]
     Active Substance: DOXORUBICIN
     Indication: Metastases to lung
  15. DOXORUBICIN [Suspect]
     Active Substance: DOXORUBICIN
     Indication: Metastases to liver
  16. BORTEZOMIB [Suspect]
     Active Substance: BORTEZOMIB
     Indication: Non-renal cell carcinoma of kidney
     Dosage: 1.3 MG/M2, CYCLIC (ON DAY 1,4,8) (4 CYCLES)
     Route: 065
  17. BORTEZOMIB [Suspect]
     Active Substance: BORTEZOMIB
     Indication: Metastases to lung
  18. BORTEZOMIB [Suspect]
     Active Substance: BORTEZOMIB
     Indication: Metastases to liver

REACTIONS (3)
  - Febrile neutropenia [Unknown]
  - Non-renal cell carcinoma of kidney [Unknown]
  - Product use in unapproved indication [Unknown]
